FAERS Safety Report 7977353-0 (Version None)
Quarter: 2011Q4

REPORT INFORMATION
  Report Type: 
  Country: None (occurrence: None)
  Receive Date: 20111213
  Receipt Date: 20101029
  Transmission Date: 20120403
  Serious: Yes (Hospitalization)
  Sender: FDA-Public Use
  Company Number: PHHY2011TW39236

PATIENT
  Sex: Female

DRUGS (4)
  1. GLEEVEC [Suspect]
     Dosage: 400 MG
  2. GLEEVEC [Suspect]
     Indication: CHRONIC MYELOID LEUKAEMIA
     Dosage: 400 MG, PER DAY
     Route: 048
     Dates: start: 20101007, end: 20110510
  3. GLEEVEC [Suspect]
     Dosage: 400 MG, DAILY AFTER BREAKFAST
     Route: 048
     Dates: start: 20111006
  4. GLEEVEC [Suspect]
     Dosage: 200 MG

REACTIONS (10)
  - GASTRIC HAEMORRHAGE [None]
  - NEPHRITIS [None]
  - TREMOR [None]
  - VOMITING [None]
  - WHITE BLOOD CELL COUNT INCREASED [None]
  - DIZZINESS [None]
  - POOR QUALITY SLEEP [None]
  - WHITE BLOOD CELL COUNT DECREASED [None]
  - COUGH [None]
  - PYREXIA [None]
